FAERS Safety Report 6873087-4 (Version None)
Quarter: 2010Q3

REPORT INFORMATION
  Report Type: 
  Country: None (occurrence: None)
  Receive Date: 20100723
  Receipt Date: 20081201
  Transmission Date: 20110219
  Serious: No
  Sender: FDA-Public Use
  Company Number: US-PFIZER INC-2008093226

PATIENT
  Sex: Female
  Weight: 72.7 kg

DRUGS (8)
  1. CHANTIX [Suspect]
     Indication: SMOKING CESSATION THERAPY
     Dosage: UNK
     Dates: start: 20081025, end: 20081117
  2. LISINOPRIL [Concomitant]
  3. XANAX [Concomitant]
  4. MONTELUKAST SODIUM [Concomitant]
  5. ALBUTEROL [Concomitant]
  6. ADVAIR DISKUS 100/50 [Concomitant]
  7. DRUG, UNSPECIFIED [Concomitant]
  8. CORTICOSTEROIDS [Concomitant]

REACTIONS (2)
  - BLOOD PRESSURE FLUCTUATION [None]
  - DRUG DOSE OMISSION [None]
